FAERS Safety Report 4667194-4 (Version None)
Quarter: 2005Q2

REPORT INFORMATION
  Report Type: 
  Country: None (occurrence: None)
  Receive Date: 20050520
  Receipt Date: 20040806
  Transmission Date: 20051028
  Serious: Yes (Other)
  Sender: FDA-Public Use
  Company Number: PHEH2004US08579

PATIENT
  Age: 50 Year
  Sex: Female

DRUGS (2)
  1. ZOMETA [Suspect]
     Indication: METASTASES TO BONE
     Dosage: 4 MG, QMO
     Route: 042
     Dates: start: 20020820
  2. TAXOTERE [Concomitant]
     Indication: BREAST CANCER METASTATIC

REACTIONS (4)
  - IMPAIRED HEALING [None]
  - INJURY [None]
  - JAW DISORDER [None]
  - OSTEONECROSIS [None]
